FAERS Safety Report 9362871 (Version 1)
Quarter: 2013Q2

REPORT INFORMATION
  Report Type: Report from Study
  Country: CA (occurrence: CA)
  Receive Date: 20130624
  Receipt Date: 20130624
  Transmission Date: 20140414
  Serious: Yes (Death)
  Sender: FDA-Public Use
  Company Number: CA-ROCHE-1147357

PATIENT
  Age: 80 Year
  Sex: Female
  Weight: 51.7 kg

DRUGS (7)
  1. BEVACIZUMAB [Suspect]
     Indication: GLIOBLASTOMA
     Route: 042
     Dates: start: 20121017, end: 20121114
  2. BEVACIZUMAB [Suspect]
     Indication: COLON CANCER
  3. DEXAMETHASONE [Concomitant]
  4. RANITIDINE [Concomitant]
  5. ALEVE [Concomitant]
  6. ESTROGEN [Concomitant]
  7. QUETIAPINE FUMARATE [Concomitant]
     Route: 065

REACTIONS (2)
  - Death [Fatal]
  - Hypertension [Unknown]
